FAERS Safety Report 15290976 (Version 1)
Quarter: 2018Q3

REPORT INFORMATION
  Report Type: Report from Study
  Country: ES (occurrence: ES)
  Receive Date: 20180817
  Receipt Date: 20180817
  Transmission Date: 20181010
  Serious: Yes (Hospitalization)
  Sender: FDA-Public Use
  Company Number: US-ASTRAZENECA-2018SE93818

PATIENT
  Age: 63 Year
  Sex: Male
  Weight: 74 kg

DRUGS (3)
  1. AZD9150 [Suspect]
     Active Substance: DANVATIRSEN
     Indication: BLADDER CANCER
     Dosage: 200 MG, WEEKLY
     Route: 042
     Dates: start: 20180319, end: 20180716
  2. LORMETAZEPAM [Concomitant]
     Active Substance: LORMETAZEPAM
     Indication: INSOMNIA
  3. MEDI4736 [Suspect]
     Active Substance: DURVALUMAB
     Indication: BLADDER CANCER
     Route: 042
     Dates: start: 20180326, end: 20180716

REACTIONS (3)
  - Thrombocytopenia [Recovered/Resolved]
  - Transaminases increased [Recovered/Resolved]
  - Urinary tract infection [Recovered/Resolved]

NARRATIVE: CASE EVENT DATE: 20180720
